FAERS Safety Report 4628298-5 (Version None)
Quarter: 2005Q2

REPORT INFORMATION
  Report Type: 
  Country: None (occurrence: None)
  Receive Date: 20050401
  Receipt Date: 20050318
  Transmission Date: 20051028
  Serious: Yes (Life-Threatening, Hospitalization)
  Sender: FDA-Public Use
  Company Number: 0500009EN0020P

PATIENT
  Age: 4 Year
  Sex: Male
  Weight: 15 kg

DRUGS (2)
  1. ONCASPAR [Suspect]
     Indication: ACUTE LYMPHOCYTIC LEUKAEMIA
     Dosage: 2500IU/M2 IM DAY 3 + 42
     Route: 030
  2. THIOGUANINE [Suspect]
     Indication: ACUTE LYMPHOCYTIC LEUKAEMIA
     Dosage: 60 MG/M2 PO DAY 28-41
     Route: 048

REACTIONS (5)
  - ABDOMINAL DISTENSION [None]
  - ASCITES [None]
  - PORTAL HYPERTENSION [None]
  - PULMONARY EMBOLISM [None]
  - VENOOCCLUSIVE DISEASE [None]
